FAERS Safety Report 9278378 (Version 1)
Quarter: 2013Q2

REPORT INFORMATION
  Report Type: Spontaneous
  Country: US (occurrence: US)
  Receive Date: 20130508
  Receipt Date: 20130508
  Transmission Date: 20140414
  Serious: No
  Sender: FDA-Public Use
  Company Number: US-009507513-1305USA003529

PATIENT
  Age: 18 Year
  Sex: Male
  Weight: 61.22 kg

DRUGS (3)
  1. CLARITIN-D 24 HOUR [Suspect]
     Indication: OCULAR HYPERAEMIA
     Dosage: 20 MG, ONCE
     Route: 048
     Dates: start: 20130423
  2. CLARITIN-D 24 HOUR [Suspect]
     Indication: EYE PRURITUS
     Dosage: 20 MG, ONCE
     Route: 048
     Dates: start: 20130423
  3. CLARITIN-D 24 HOUR [Suspect]
     Indication: HYPERSENSITIVITY

REACTIONS (2)
  - Accidental overdose [Unknown]
  - Drug ineffective [Unknown]
